FAERS Safety Report 24545890 (Version 5)
Quarter: 2024Q4

REPORT INFORMATION
  Report Type: Spontaneous
  Country: US (occurrence: US)
  Receive Date: 20241024
  Receipt Date: 20241120
  Transmission Date: 20250115
  Serious: Yes (Death, Congenital Anomaly, Other)
  Sender: ABBVIE
  Company Number: US-ABBVIE-5973052

PATIENT

DRUGS (1)
  1. SKYRIZI [Suspect]
     Active Substance: RISANKIZUMAB-RZAA
     Indication: Maternal exposure timing unspecified
     Dosage: FORM STRENGTH:150 MILLIGRAM
     Route: 064

REACTIONS (4)
  - Lymphatic malformation [Fatal]
  - Congenital musculoskeletal disorder of skull [Fatal]
  - Umbilical cord short [Fatal]
  - Foetal exposure during pregnancy [Unknown]
